FAERS Safety Report 8561325-1 (Version None)
Quarter: 2012Q3

REPORT INFORMATION
  Report Type: 
  Country: None (occurrence: None)
  Receive Date: 20120727
  Receipt Date: 20120727
  Transmission Date: 20120928
  Serious: Yes (Hospitalization)
  Sender: FDA-Public Use
  Company Number: None

PATIENT
  Age: 55 Year
  Sex: Male
  Weight: 84.5 kg

DRUGS (16)
  1. METOPROLOL TARTRATE [Concomitant]
  2. TRAMADOL HCL [Concomitant]
  3. NEURONTOIN [Concomitant]
  4. TRAZODONE HCL [Suspect]
     Indication: BIPOLAR DISORDER
     Dosage: 200MG NIGHTLY PO RECENT
     Route: 048
  5. ZETIA [Concomitant]
  6. SYNTHROID [Concomitant]
  7. OLANZAPINE [Concomitant]
  8. ASPIRIN [Concomitant]
  9. LOVAZA [Concomitant]
  10. PLAVIX [Concomitant]
  11. M.V.I. [Concomitant]
  12. NAPROXEN (ALEVE) [Concomitant]
  13. ATROVENT [Concomitant]
  14. HYDROXYZINE [Concomitant]
  15. DEPAKOTE ER [Suspect]
     Indication: BIPOLAR DISORDER
     Dosage: 1000MG BID PO RECENT
     Route: 048
  16. NITROGLYCERIN [Concomitant]

REACTIONS (3)
  - HYPERSENSITIVITY [None]
  - SWELLING FACE [None]
  - INSOMNIA [None]
